FAERS Safety Report 25106287 (Version 1)
Quarter: 2025Q1

REPORT INFORMATION
  Report Type: Spontaneous
  Country: US (occurrence: None)
  Receive Date: 20250320
  Receipt Date: 20250320
  Transmission Date: 20250409
  Serious: No
  Sender: FDA-CTU
  Company Number: None

PATIENT
  Age: 65 Year
  Sex: Male

DRUGS (2)
  1. SUGAMMADEX [Suspect]
     Active Substance: SUGAMMADEX
     Dates: start: 20240802, end: 20240802
  2. PROTAMINE [Suspect]
     Active Substance: PROTAMINE

REACTIONS (1)
  - Anaphylactic reaction [None]

NARRATIVE: CASE EVENT DATE: 20240802
